FAERS Safety Report 12009373 (Version 1)
Quarter: 2016Q1

REPORT INFORMATION
  Report Type: Spontaneous
  Country: US (occurrence: None)
  Receive Date: 20160204
  Receipt Date: 20160204
  Transmission Date: 20160526
  Serious: Yes (Hospitalization)
  Sender: FDA-Public Use
  Company Number: None

PATIENT
  Sex: Female
  Weight: 63.5 kg

DRUGS (14)
  1. COMPLETE WOMENS HEALTH SENIOR [Concomitant]
  2. ACIDOPHILUS [Concomitant]
     Active Substance: LACTOBACILLUS ACIDOPHILUS
  3. PROBIOTIC GOLD [Concomitant]
  4. HEARTBURN RELIEF [Concomitant]
     Active Substance: CIMETIDINE\RANITIDINE HYDROCHLORIDE
  5. SODIUM DOCUSATE [Concomitant]
     Active Substance: DOCUSATE SODIUM
  6. ASPIRIN. [Concomitant]
     Active Substance: ASPIRIN
  7. NATURES BOUNTY [Concomitant]
  8. STOOL SOFTENER [Concomitant]
     Active Substance: DOCUSATE CALCIUM
  9. MIRALAX [Concomitant]
     Active Substance: POLYETHYLENE GLYCOL 3350
  10. VITAMIN D [Concomitant]
     Active Substance: CHOLECALCIFEROL
  11. PROBIOTIC [Concomitant]
     Active Substance: PROBIOTICS NOS
  12. OXYBUTYNIN CHLORIDE. [Suspect]
     Active Substance: OXYBUTYNIN CHLORIDE
     Indication: INCONTINENCE
     Dosage: 1 TABKET BY MOUTH EVERY DAY, 2X AT BEDTIME
     Route: 048
     Dates: start: 201510
  13. DAILY VITAMIN [Concomitant]
     Active Substance: VITAMINS
  14. CALCIUM [Concomitant]
     Active Substance: CALCIUM

REACTIONS (8)
  - Swelling [None]
  - Flatulence [None]
  - Fluid retention [None]
  - Eye haemorrhage [None]
  - Dyspepsia [None]
  - Balance disorder [None]
  - Constipation [None]
  - Hypertension [None]

NARRATIVE: CASE EVENT DATE: 2016
